FAERS Safety Report 8980550 (Version 2)
Quarter: 2013Q1

REPORT INFORMATION
  Report Type: Spontaneous
  Country: JP (occurrence: JP)
  Receive Date: 20121221
  Receipt Date: 20130225
  Transmission Date: 20140127
  Serious: Yes (Other)
  Sender: FDA-Public Use
  Company Number: JP-ASTRAZENECA-2012SE93794

PATIENT
  Age: 48 Year
  Sex: Female

DRUGS (5)
  1. ZOLADEX [Suspect]
     Indication: BREAST CANCER
     Route: 058
  2. NOLVADEX [Suspect]
     Indication: BREAST CANCER
     Route: 048
  3. EPIRUBICIN HYDROCHLORIDE [Suspect]
     Indication: BREAST CANCER
     Route: 065
  4. CYCLOPHOSPHAMIDE HYDRATE [Concomitant]
     Indication: BREAST CANCER
     Route: 065
  5. 5-FU [Concomitant]
     Indication: BREAST CANCER
     Route: 065

REACTIONS (1)
  - Acute promyelocytic leukaemia [Recovering/Resolving]
